FAERS Safety Report 8201113-9 (Version None)
Quarter: 2012Q1

REPORT INFORMATION
  Report Type: 
  Country: None (occurrence: None)
  Receive Date: 20120312
  Receipt Date: 20120305
  Transmission Date: 20120608
  Serious: Yes (Hospitalization)
  Sender: FDA-Public Use
  Company Number: FR-SANOFI-AVENTIS-2012SA014636

PATIENT
  Age: 58 Year
  Sex: Female

DRUGS (17)
  1. ATORVASTATIN [Concomitant]
     Route: 065
  2. MOTILIUM [Suspect]
     Route: 048
     Dates: start: 20111214, end: 20111228
  3. IMODIUM [Suspect]
     Route: 048
     Dates: start: 20111219, end: 20111227
  4. LYRICA [Concomitant]
     Route: 065
  5. PRAMIPEXOLE DIHYDROCHLORIDE [Concomitant]
     Route: 065
  6. LORAZEPAM [Concomitant]
     Route: 065
  7. TOPLEXIL [Suspect]
     Route: 048
     Dates: start: 20111218, end: 20111225
  8. FERROUS SULFATE TAB [Suspect]
     Route: 048
     Dates: start: 20111216, end: 20111227
  9. METFORMIN HCL [Concomitant]
     Route: 065
  10. LEVOFLOXACIN [Suspect]
     Indication: OSTEITIS
     Route: 048
     Dates: start: 20111214, end: 20111229
  11. PLAVIX [Concomitant]
     Route: 065
  12. INSULIN [Concomitant]
     Route: 065
  13. LEVOTHYROXINE SODIUM [Concomitant]
     Route: 065
  14. GENTAMICIN [Concomitant]
     Indication: OSTEITIS
     Route: 065
     Dates: start: 20111214, end: 20111218
  15. KERLONE [Concomitant]
     Route: 065
  16. LOVENOX [Suspect]
     Route: 058
     Dates: start: 20111214, end: 20111228
  17. RIFADIN [Suspect]
     Indication: OSTEITIS
     Route: 048
     Dates: start: 20111219, end: 20111227

REACTIONS (4)
  - RENAL FAILURE [None]
  - PRURITUS [None]
  - CYTOLYTIC HEPATITIS [None]
  - EOSINOPHILIA [None]
